FAERS Safety Report 6775788-5 (Version None)
Quarter: 2010Q2

REPORT INFORMATION
  Report Type: 
  Country: None (occurrence: None)
  Receive Date: 20100617
  Receipt Date: 20100609
  Transmission Date: 20101027
  Serious: Yes (Hospitalization)
  Sender: FDA-Public Use
  Company Number: US-ABBOTT-10P-163-0650659-00

PATIENT
  Sex: Female
  Weight: 44.038 kg

DRUGS (9)
  1. HUMIRA [Suspect]
     Indication: CROHN'S DISEASE
     Dates: start: 20090901
  2. HEPARIN [Suspect]
     Indication: DRUG USE FOR UNKNOWN INDICATION
     Dates: start: 20100501, end: 20100501
  3. ADVAIR DISKUS 100/50 [Concomitant]
     Indication: ASTHMA
  4. ESTRADIOL [Concomitant]
     Indication: HORMONE REPLACEMENT THERAPY
  5. LISINOPRIL [Concomitant]
     Indication: HYPERTENSION
  6. ASPIRIN [Concomitant]
     Indication: CARDIOVASCULAR EVENT PROPHYLAXIS
  7. KLOR-CON [Concomitant]
     Indication: ELECTROLYTE SUBSTITUTION THERAPY
  8. TRAMADOL [Concomitant]
     Indication: PAIN
  9. HYDROCODONE [Concomitant]
     Indication: PAIN

REACTIONS (7)
  - ABDOMINAL PAIN [None]
  - ABSCESS INTESTINAL [None]
  - ACQUIRED OESOPHAGEAL WEB [None]
  - GASTRIC ULCER [None]
  - HAEMATOMA [None]
  - HIATUS HERNIA [None]
  - VOMITING [None]
